FAERS Safety Report 5374371-6 (Version None)
Quarter: 2007Q2

REPORT INFORMATION
  Report Type: 
  Country: None (occurrence: None)
  Receive Date: 20070627
  Receipt Date: 20070115
  Transmission Date: 20071010
  Serious: Yes (Death)
  Sender: FDA-Public Use
  Company Number: 478780

PATIENT
  Age: 73 Year
  Sex: Male
  Weight: 90.7 kg

DRUGS (1)
  1. XELODA [Suspect]
     Indication: PANCREATIC CARCINOMA
     Dosage: ORAL
     Route: 048

REACTIONS (1)
  - PANCREATIC CARCINOMA [None]
